FAERS Safety Report 17350953 (Version 1)
Quarter: 2020Q1

REPORT INFORMATION
  Report Type: Report from Study
  Country: DE (occurrence: DE)
  Receive Date: 20200130
  Receipt Date: 20200130
  Transmission Date: 20200409
  Serious: Yes (Death, Hospitalization)
  Sender: FDA-Public Use
  Company Number: DE-ROCHE-1455265

PATIENT
  Age: 81 Year
  Sex: Female
  Weight: 49 kg

DRUGS (12)
  1. FOLINSAEURE [Suspect]
     Active Substance: LEUCOVORIN
     Indication: COLORECTAL CANCER METASTATIC
     Dosage: LAST DOSE PRIOR TO SAE 04/SEP/2014
     Route: 042
     Dates: start: 20140904
  2. BEVACIZUMAB. [Suspect]
     Active Substance: BEVACIZUMAB
     Indication: COLORECTAL CANCER METASTATIC
     Dosage: LAST DOSE PRIOR TO SAE WAS ON 05/AUG/2014.
     Route: 042
     Dates: start: 20131126
  3. 5-FLUOROURACIL [FLUOROURACIL] [Suspect]
     Active Substance: FLUOROURACIL
     Dosage: LAST DOSE PRIOR TO SAE 04/SEP/2014
     Route: 042
     Dates: start: 20140904, end: 20140906
  4. PANTOZOL [Concomitant]
     Active Substance: PANTOPRAZOLE SODIUM
     Route: 065
  5. CAPECITABINE. [Suspect]
     Active Substance: CAPECITABINE
     Indication: COLORECTAL CANCER METASTATIC
     Dosage: LAST DOSE PRIOR TO SAE 11/AUG/2014. FREQUENCY 14 DAY/7 DAY
     Route: 048
     Dates: start: 20131126
  6. 5-FLUOROURACIL [FLUOROURACIL] [Suspect]
     Active Substance: FLUOROURACIL
     Indication: COLORECTAL CANCER METASTATIC
     Dosage: LAST DOSE PRIOR TO SAE 04/SEP/2014
     Route: 040
     Dates: start: 20140904, end: 20140904
  7. RAMIPRIL. [Concomitant]
     Active Substance: RAMIPRIL
  8. BEVACIZUMAB. [Suspect]
     Active Substance: BEVACIZUMAB
     Dosage: LAST DOSE PRIOR TO SAE 04/SEP/2014
     Route: 042
     Dates: start: 20140904
  9. TARGIN [Concomitant]
     Active Substance: NALOXONE HYDROCHLORIDE\OXYCODONE HYDROCHLORIDE
     Dosage: TARGIN 20/10 MG/DAY
     Route: 065
  10. IRINOTECAN [Suspect]
     Active Substance: IRINOTECAN
     Indication: COLORECTAL CANCER METASTATIC
     Dosage: LAST DOSE PRIOR TO SAE 04/SEP/2014
     Route: 042
     Dates: start: 20140904
  11. TARGIN [Concomitant]
     Active Substance: NALOXONE HYDROCHLORIDE\OXYCODONE HYDROCHLORIDE
     Dosage: TARGIN 5/2.5 MG/DAY
     Route: 065
  12. SODIUM BICARBONATE. [Concomitant]
     Active Substance: SODIUM BICARBONATE
     Dosage: SODIUM BICARBONATE TABLETS 6/DAY
     Route: 065
     Dates: end: 20140915

REACTIONS (4)
  - Neoplasm progression [Fatal]
  - Atrial fibrillation [Recovered/Resolved]
  - Febrile infection [Recovered/Resolved]
  - Myocardial infarction [Not Recovered/Not Resolved]

NARRATIVE: CASE EVENT DATE: 20140811
